FAERS Safety Report 24713245 (Version 1)
Quarter: 2024Q4

REPORT INFORMATION
  Report Type: Spontaneous
  Country: US (occurrence: US)
  Receive Date: 20241209
  Receipt Date: 20241209
  Transmission Date: 20250115
  Serious: No
  Sender: REGENERON
  Company Number: US-REGENERON PHARMACEUTICALS, INC.-2023-156576

PATIENT
  Sex: Male

DRUGS (4)
  1. EYLEA [Suspect]
     Active Substance: AFLIBERCEPT
     Indication: Neovascular age-related macular degeneration
     Dosage: UNK, FORMULATION: UNKNOWN
     Route: 031
     Dates: start: 202310
  2. EYLEA [Suspect]
     Active Substance: AFLIBERCEPT
     Indication: Choroidal neovascularisation
     Dosage: UNK (SECOND INJECTION), FORMULATION: UNKNOWN
     Route: 031
     Dates: start: 20231219
  3. AVASTIN [Concomitant]
     Active Substance: BEVACIZUMAB
     Indication: Product used for unknown indication
  4. VABYSMO [Concomitant]
     Active Substance: FARICIMAB-SVOA
     Indication: Product used for unknown indication

REACTIONS (6)
  - Blepharospasm [Recovered/Resolved]
  - Skin disorder [Unknown]
  - Eye oedema [Unknown]
  - Eye pain [Unknown]
  - Vitreous floaters [Unknown]
  - Lacrimation increased [Recovered/Resolved]

NARRATIVE: CASE EVENT DATE: 20230101
